FAERS Safety Report 9588038 (Version 6)
Quarter: 2018Q4

REPORT INFORMATION
  Report Type: Report from Study
  Country: JP (occurrence: JP)
  Receive Date: 20131003
  Receipt Date: 20181012
  Transmission Date: 20190205
  Serious: No
  Sender: FDA-Public Use
  Company Number: PHHY2012JP123783

PATIENT
  Age: 5 Year
  Sex: Male
  Weight: 15 kg

DRUGS (29)
  1. ILARIS [Suspect]
     Active Substance: CANAKINUMAB
     Dosage: 120 MG, UNK
     Route: 058
     Dates: start: 20120123, end: 20120123
  2. ILARIS [Suspect]
     Active Substance: CANAKINUMAB
     Dosage: 128 MG, UNK
     Route: 058
     Dates: start: 20120614, end: 20120614
  3. ILARIS [Suspect]
     Active Substance: CANAKINUMAB
     Dosage: 128 MG, UNK
     Route: 058
     Dates: start: 20120907, end: 20120907
  4. ILARIS [Suspect]
     Active Substance: CANAKINUMAB
     Dosage: 128 MG, UNK
     Route: 058
     Dates: start: 20121204, end: 20121204
  5. ILARIS [Suspect]
     Active Substance: CANAKINUMAB
     Dosage: 135 MG, UNK
     Route: 058
     Dates: start: 20130412, end: 20130412
  6. ILARIS [Suspect]
     Active Substance: CANAKINUMAB
     Dosage: 135 MG, UNK
     Route: 058
     Dates: start: 20130708, end: 20130708
  7. ILARIS [Suspect]
     Active Substance: CANAKINUMAB
     Dosage: 150 MG, UNK
     Route: 058
     Dates: start: 20140127, end: 20140127
  8. ILARIS [Suspect]
     Active Substance: CANAKINUMAB
     Dosage: 128 MG, UNK
     Route: 058
     Dates: start: 20120517, end: 20120517
  9. ILARIS [Suspect]
     Active Substance: CANAKINUMAB
     Dosage: 128 MG, UNK
     Route: 058
     Dates: start: 20120712, end: 20120712
  10. ILARIS [Suspect]
     Active Substance: CANAKINUMAB
     Dosage: 128 MG, UNK
     Route: 058
     Dates: start: 20121005, end: 20121005
  11. ILARIS [Suspect]
     Active Substance: CANAKINUMAB
     Dosage: 150 MG, UNK
     Route: 058
     Dates: start: 20131105, end: 20131105
  12. ILARIS [Suspect]
     Active Substance: CANAKINUMAB
     Dosage: 128 MG, UNK
     Route: 058
     Dates: start: 20120810, end: 20120810
  13. ILARIS [Suspect]
     Active Substance: CANAKINUMAB
     Dosage: 128 MG, UNK
     Route: 058
     Dates: start: 20121102, end: 20121102
  14. ILARIS [Suspect]
     Active Substance: CANAKINUMAB
     Dosage: 135 MG, UNK
     Route: 058
     Dates: start: 20130610, end: 20130610
  15. ILARIS [Suspect]
     Active Substance: CANAKINUMAB
     Dosage: 150 MG, UNK
     Route: 058
     Dates: start: 20131007, end: 20131007
  16. ILARIS [Suspect]
     Active Substance: CANAKINUMAB
     Dosage: 150 MG, UNK
     Route: 058
     Dates: start: 20131202, end: 20131202
  17. ILARIS [Suspect]
     Active Substance: CANAKINUMAB
     Dosage: 135 MG, UNK
     Route: 058
     Dates: start: 20120323, end: 20120323
  18. ILARIS [Suspect]
     Active Substance: CANAKINUMAB
     Dosage: 135 MG, UNK
     Route: 058
     Dates: start: 20130108, end: 20130108
  19. ILARIS [Suspect]
     Active Substance: CANAKINUMAB
     Dosage: 135 MG, UNK
     Route: 058
     Dates: start: 20130215, end: 20130215
  20. ILARIS [Suspect]
     Active Substance: CANAKINUMAB
     Dosage: 135 MG, UNK
     Route: 058
     Dates: start: 20130509, end: 20130509
  21. ILARIS [Suspect]
     Active Substance: CANAKINUMAB
     Dosage: 135 MG, UNK
     Route: 058
     Dates: start: 20130805, end: 20130805
  22. ILARIS [Suspect]
     Active Substance: CANAKINUMAB
     Dosage: 150 MG, UNK
     Route: 058
     Dates: start: 20131230, end: 20131230
  23. ACETAMINOPHEN. [Concomitant]
     Active Substance: ACETAMINOPHEN
     Indication: CHRONIC INFANTILE NEUROLOGICAL CUTANEOUS AND ARTICULAR SYNDROME
     Dosage: 120 G, QD
     Route: 065
  24. ILARIS [Suspect]
     Active Substance: CANAKINUMAB
     Indication: CHRONIC INFANTILE NEUROLOGICAL CUTANEOUS AND ARTICULAR SYNDROME
     Dosage: 150 MG, UNK
     Route: 058
     Dates: start: 20091203, end: 20111226
  25. ILARIS [Suspect]
     Active Substance: CANAKINUMAB
     Dosage: 150 MG, UNK
     Route: 058
     Dates: start: 20130902, end: 20130902
  26. ILARIS [Suspect]
     Active Substance: CANAKINUMAB
     Dosage: 120 MG, UNK
     Route: 058
     Dates: start: 20120220, end: 20120220
  27. ILARIS [Suspect]
     Active Substance: CANAKINUMAB
     Dosage: 128 MG, UNK
     Route: 058
     Dates: start: 20120419, end: 20120419
  28. ILARIS [Suspect]
     Active Substance: CANAKINUMAB
     Dosage: 135 MG, UNK
     Route: 058
     Dates: start: 20130315, end: 20130315
  29. ILARIS [Suspect]
     Active Substance: CANAKINUMAB
     Dosage: 150 MG, UNK
     Route: 058
     Dates: start: 20140224, end: 20140224

REACTIONS (13)
  - Gastroenteritis [Recovered/Resolved]
  - Sinusitis [Recovering/Resolving]
  - Bronchitis [Recovering/Resolving]
  - Upper respiratory tract infection [Recovered/Resolved]
  - Impetigo [Recovered/Resolved]
  - Dry skin [Not Recovered/Not Resolved]
  - Rhinitis [Recovering/Resolving]
  - Streptococcus test positive [Recovered/Resolved]
  - Diarrhoea [Recovered/Resolved]
  - Conjunctivitis [Recovering/Resolving]
  - Liver disorder [Recovering/Resolving]
  - Pruritus [Recovered/Resolved]
  - Upper respiratory tract infection [Recovered/Resolved]

NARRATIVE: CASE EVENT DATE: 20120428
